FAERS Safety Report 4445983-9 (Version None)
Quarter: 2004Q3

REPORT INFORMATION
  Report Type: 
  Country: None (occurrence: None)
  Receive Date: 20040910
  Receipt Date: 20040629
  Transmission Date: 20050211
  Serious: Yes (Hospitalization)
  Sender: FDA-Public Use
  Company Number: FR-MERCK-0406FRA00114

PATIENT
  Age: 53 Year
  Sex: Female
  Weight: 46 kg

DRUGS (3)
  1. CEFPODOXIME PROXETIL [Concomitant]
     Indication: INFECTION
     Route: 048
  2. CELECOXIB [Suspect]
     Indication: ARTHRALGIA
     Route: 048
  3. VIOXX [Suspect]
     Indication: ARTHRALGIA
     Route: 048

REACTIONS (3)
  - COLITIS [None]
  - DIARRHOEA [None]
  - GENERALISED OEDEMA [None]
